FAERS Safety Report 22353804 (Version 1)
Quarter: 2023Q2

REPORT INFORMATION
  Report Type: Spontaneous
  Country: CN (occurrence: CN)
  Receive Date: 20230523
  Receipt Date: 20230523
  Transmission Date: 20230722
  Serious: Yes (Hospitalization, Other)
  Sender: FDA-Public Use
  Company Number: None

PATIENT
  Age: 61 Year
  Sex: Female
  Weight: 51 kg

DRUGS (9)
  1. CYCLOPHOSPHAMIDE [Suspect]
     Active Substance: CYCLOPHOSPHAMIDE
     Indication: Diffuse large B-cell lymphoma
     Dosage: 1 G, QD, DILUTED WITH 250 ML OF SODIUM CHLORIDE, FIRST CYCLE OF CHOP REGIMEN TARGETED CHEMOTHERAPY
     Route: 041
     Dates: start: 20230419, end: 20230419
  2. SODIUM CHLORIDE [Suspect]
     Active Substance: SODIUM CHLORIDE
     Indication: Medication dilution
     Dosage: INJECTION, 250 ML, QD, USED TO DILUTE 1 G OF CYCLOPHOSPHAMIDE, FIRST CYCLE OF CHOP REGIMEN TARGETED
     Route: 041
     Dates: start: 20230419, end: 20230419
  3. SODIUM CHLORIDE [Suspect]
     Active Substance: SODIUM CHLORIDE
     Dosage: 500 ML, QD, USED TO DILUTE 500 MG OF RITUXIMAB, FIRST CYCLE OF CHOP REGIMEN TARGETED CHEMOTHERAPY
     Route: 041
     Dates: start: 20230418, end: 20230418
  4. SODIUM CHLORIDE [Suspect]
     Active Substance: SODIUM CHLORIDE
     Dosage: 250 ML, QD, USED TO DILUTE 100 MG OF EPIRUBICIN, FIRST CYCLE OF CHOP REGIMEN TARGETED CHEMOTHERAPY
     Route: 041
     Dates: start: 20230419, end: 20230419
  5. SODIUM CHLORIDE [Suspect]
     Active Substance: SODIUM CHLORIDE
     Dosage: 100 ML, QD, USED TO DILUTE 4 MG OF VINDESINE, FIRST CYCLE OF CHOP REGIMEN TARGETED CHEMOTHERAPY
     Route: 041
     Dates: start: 20230419, end: 20230419
  6. RITUXIMAB [Suspect]
     Active Substance: RITUXIMAB
     Indication: Diffuse large B-cell lymphoma
     Dosage: 500 MG, QD, DILUTED WITH 500 ML OF SODIUM CHLORIDE, FIRST CYCLE OF CHOP REGIMEN TARGETED CHEMOTHERAP
     Route: 041
     Dates: start: 20230418, end: 20230418
  7. EPIRUBICIN [Suspect]
     Active Substance: EPIRUBICIN
     Indication: Diffuse large B-cell lymphoma
     Dosage: 100 MG, QD, DILUTED WITH 250 ML OF SODIUM CHLORIDE, FIRST CYCLE OF CHOP REGIMEN TARGETED CHEMOTHERAP
     Route: 041
     Dates: start: 20230419, end: 20230419
  8. VINDESINE SULFATE [Suspect]
     Active Substance: VINDESINE SULFATE
     Indication: Diffuse large B-cell lymphoma
     Dosage: 4 MG, QD, DILUTED WITH 100 ML OF SODIUM CHLORIDE, FIRST CYCLE OF CHOP REGIMEN TARGETED CHEMOTHERAPY
     Route: 041
     Dates: start: 20230419, end: 20230419
  9. PREDNISONE [Suspect]
     Active Substance: PREDNISONE
     Indication: Diffuse large B-cell lymphoma
     Dosage: 100 MG, QD, D1-5, FIRST CYCLE OF CHOP REGIMEN TARGETED CHEMOTHERAPY
     Route: 048
     Dates: start: 20230418, end: 20230422

REACTIONS (6)
  - Blood potassium decreased [Recovering/Resolving]
  - Myelosuppression [Recovering/Resolving]
  - Neutropenia [Recovering/Resolving]
  - Thrombocytopenia [Recovering/Resolving]
  - Pyrexia [Recovering/Resolving]
  - White blood cell count decreased [Recovering/Resolving]

NARRATIVE: CASE EVENT DATE: 20230423
